FAERS Safety Report 7218950-X (Version None)
Quarter: 2011Q1

REPORT INFORMATION
  Report Type: 
  Country: None (occurrence: None)
  Receive Date: 20110111
  Receipt Date: 20101230
  Transmission Date: 20110831
  Serious: Yes (Death, Hospitalization)
  Sender: FDA-Public Use
  Company Number: US-BIOGENIDEC-2010BI037223

PATIENT
  Age: 58 Year
  Sex: Male

DRUGS (1)
  1. TYSABRI [Suspect]
     Indication: CROHN'S DISEASE
     Route: 042
     Dates: start: 20080522, end: 20100819

REACTIONS (2)
  - ENTEROCOCCAL INFECTION [None]
  - SUBACUTE ENDOCARDITIS [None]
